FAERS Safety Report 5507313-0 (Version None)
Quarter: 2007Q4

REPORT INFORMATION
  Report Type: 
  Country: None (occurrence: None)
  Receive Date: 20071102
  Receipt Date: 20071026
  Transmission Date: 20080405
  Serious: Yes (Death)
  Sender: FDA-Public Use
  Company Number: 2007SP007755

PATIENT
  Age: 46 Year
  Sex: Male
  Weight: 92 kg

DRUGS (11)
  1. PEGETRON (PEGINTERFERON ALFA-2B W/RIBAVIRIN) (PEGYLATED INTERFERON ALF [Suspect]
     Indication: HEPATITIS C
     Dosage: 150 MCG;QW;SC 1200 MG;QD;PO
     Route: 058
     Dates: start: 20070212
  2. PEGETRON (PEGINTERFERON ALFA-2B W/RIBAVIRIN) (PEGYLATED INTERFERON ALF [Suspect]
     Indication: HEPATITIS C
     Dosage: 150 MCG;QW;SC 1200 MG;QD;PO
     Route: 058
     Dates: start: 20070212
  3. REMICADE [Suspect]
     Indication: HEPATITIS C
     Dosage: 482.5 MG;ONCE;IV
     Route: 042
     Dates: start: 20070205, end: 20070205
  4. VERAPAMIL [Concomitant]
  5. GABAPENTIN [Concomitant]
  6. IBUPROFEN [Concomitant]
  7. EFFEXOR XR [Concomitant]
  8. EMTEC-30 [Concomitant]
  9. MAXALT [Concomitant]
  10. UREMOL HC [Concomitant]
  11. IMOVANE [Concomitant]

REACTIONS (3)
  - ANOREXIA [None]
  - ARTERIOSCLEROSIS CORONARY ARTERY [None]
  - RASH [None]
